FAERS Safety Report 8775866 (Version 2)
Quarter: 2012Q4

REPORT INFORMATION
  Report Type: 
  Country: JP (occurrence: JP)
  Receive Date: 20120910
  Receipt Date: 20121003
  Transmission Date: 20130627
  Serious: Yes (Hospitalization)
  Sender: FDA-Public Use
  Company Number: JP-009507513-1209JPN002459

PATIENT

DRUGS (2)
  1. ZETIA [Suspect]
     Indication: DYSLIPIDAEMIA
     Dosage: 10 mg, qd
     Route: 048
     Dates: end: 20120824
  2. RIZE [Concomitant]
     Indication: INSOMNIA
     Dosage: took as needed about once every 2-3 days
     Route: 048
     Dates: end: 20120824

REACTIONS (2)
  - Hepatic enzyme increased [Recovered/Resolved]
  - Biliary cirrhosis primary [Unknown]
